FAERS Safety Report 13058895 (Version 1)
Quarter: 2016Q4

REPORT INFORMATION
  Report Type: Spontaneous
  Country: US (occurrence: US)
  Receive Date: 20161223
  Receipt Date: 20161223
  Transmission Date: 20170207
  Serious: No
  Sender: FDA-Public Use
  Company Number: US-BAUSCH-BL-2016-010086

PATIENT
  Sex: Male

DRUGS (1)
  1. XENAZINE [Suspect]
     Active Substance: TETRABENAZINE
     Indication: DYSKINESIA
     Dates: start: 20160418, end: 20160421

REACTIONS (5)
  - Drug ineffective for unapproved indication [Unknown]
  - Asthenia [Unknown]
  - Sedation [Unknown]
  - Depressed mood [Unknown]
  - Off label use [Recovered/Resolved]
